FAERS Safety Report 6133737-7 (Version None)
Quarter: 2009Q1

REPORT INFORMATION
  Report Type: 
  Country: None (occurrence: None)
  Receive Date: 20090326
  Receipt Date: 20090318
  Transmission Date: 20090719
  Serious: Yes (Life-Threatening, Hospitalization)
  Sender: FDA-Public Use
  Company Number: PL-JNJFOC-20090302259

PATIENT
  Age: 23 Year
  Sex: Male

DRUGS (4)
  1. PARACETAMOL [Suspect]
     Route: 048
  2. PARACETAMOL [Suspect]
     Indication: INFECTION
     Route: 048
  3. AMINOPHENAZONE [Suspect]
     Indication: INFECTION
  4. PHENOXYMETHYL PENICILLIN [Suspect]
     Indication: INFECTION

REACTIONS (2)
  - APLASTIC ANAEMIA [None]
  - TOXIC EPIDERMAL NECROLYSIS [None]
